FAERS Safety Report 9394912 (Version 1)
Quarter: 2013Q3

REPORT INFORMATION
  Report Type: Spontaneous
  Country: US (occurrence: US)
  Receive Date: 20130711
  Receipt Date: 20130711
  Transmission Date: 20140515
  Serious: Yes (Other)
  Sender: FDA-Public Use
  Company Number: US-PFIZER INC-2013203401

PATIENT
  Age: 57 Year
  Sex: Female
  Weight: 92.52 kg

DRUGS (3)
  1. VENLAFAXINE HCL [Suspect]
     Dosage: UNK
  2. LEVOTHYROXINE [Concomitant]
     Indication: HYPOTHYROIDISM
     Dosage: 100 UG, 1X/DAY
  3. PREMARIN [Concomitant]
     Dosage: 0.9 MG, 1X/DAY

REACTIONS (1)
  - Impaired driving ability [Unknown]
